FAERS Safety Report 11055260 (Version 2)
Quarter: 2015Q4

REPORT INFORMATION
  Report Type: Spontaneous
  Country: IT (occurrence: IT)
  Receive Date: 20150422
  Receipt Date: 20151014
  Transmission Date: 20160304
  Serious: Yes (Hospitalization, Other)
  Sender: FDA-Public Use
  Company Number: IT-PFIZER INC-2015136094

PATIENT
  Age: 37 Year
  Sex: Male

DRUGS (5)
  1. ENDOXAN-BAXTER [Suspect]
     Active Substance: CYCLOPHOSPHAMIDE
     Indication: LYMPHOMA
     Dosage: 2268 MG, CYCLIC
     Route: 042
     Dates: start: 20150309, end: 20150309
  2. ADRIBLASTINA [Suspect]
     Active Substance: DOXORUBICIN HYDROCHLORIDE
     Indication: LYMPHOMA
     Dosage: 66.1 MG, CYCLIC
     Route: 040
     Dates: start: 20150309, end: 20150309
  3. BLEOPRIM [Suspect]
     Active Substance: BLEOMYCIN SULFATE
     Indication: LYMPHOMA
     Dosage: 18.9 MG, CYCLIC
     Route: 040
     Dates: start: 20150223, end: 20150316
  4. ETOPOSIDE TEVA [Suspect]
     Active Substance: ETOPOSIDE
     Indication: LYMPHOMA
     Dosage: 378 MG, CYCLIC
     Route: 042
     Dates: start: 20150309, end: 20150311
  5. VINCRISTINA CRINOS [Suspect]
     Active Substance: VINCRISTINE SULFATE
     Indication: LYMPHOMA
     Dosage: 2 MG, CYCLIC
     Route: 040
     Dates: start: 20150223, end: 20150316

REACTIONS (6)
  - Clostridium difficile colitis [Recovered/Resolved]
  - Rash papular [Recovered/Resolved]
  - Platelet count decreased [Recovered/Resolved]
  - Febrile neutropenia [Recovered/Resolved]
  - White blood cell count decreased [Recovered/Resolved]
  - Haemoglobin decreased [Recovered/Resolved]

NARRATIVE: CASE EVENT DATE: 20150319
